FAERS Safety Report 7348322 (Version 3)
Quarter: 2013Q4

REPORT INFORMATION
  Report Type: Spontaneous
  Country: US (occurrence: US)
  Receive Date: 20100408
  Receipt Date: 20131223
  Transmission Date: 20140711
  Serious: Yes (Hospitalization)
  Sender: FDA-Public Use
  Company Number: US-JNJFOC-20100400691

PATIENT
  Sex: Male
  Weight: 95.26 kg

DRUGS (7)
  1. ULTRAM [Suspect]
     Indication: NECK PAIN
     Route: 048
  2. ULTRAM [Suspect]
     Indication: NECK PAIN
     Route: 048
     Dates: start: 1997
  3. ULTRAM [Suspect]
     Indication: BACK PAIN
     Route: 048
  4. ULTRAM [Suspect]
     Indication: BACK PAIN
     Route: 048
     Dates: start: 1997
  5. TRAMADOL HYDROCHLORIDE [Suspect]
     Indication: NECK PAIN
     Dosage: 6 TIMES IN 24 HOURS AS NEEDED
     Route: 048
  6. TRAMADOL HYDROCHLORIDE [Suspect]
     Indication: BACK PAIN
     Dosage: 6 TIMES IN 24 HOURS AS NEEDED
     Route: 048
  7. SELOKEN ZOC [Concomitant]
     Indication: ARRHYTHMIA
     Route: 048

REACTIONS (6)
  - Musculoskeletal disorder [Recovered/Resolved]
  - Back disorder [Recovered/Resolved]
  - Heart rate increased [Recovered/Resolved]
  - Sciatica [Recovered/Resolved]
  - Product physical issue [Unknown]
  - Therapeutic response decreased [Not Recovered/Not Resolved]
